FAERS Safety Report 7771612-2 (Version None)
Quarter: 2011Q3

REPORT INFORMATION
  Report Type: 
  Country: None (occurrence: None)
  Receive Date: 20110922
  Receipt Date: 20101217
  Transmission Date: 20111222
  Serious: Yes (Hospitalization)
  Sender: FDA-Public Use
  Company Number: US-ASTRAZENECA-2010SE59766

PATIENT
  Age: 48 Year
  Sex: Male
  Weight: 136.1 kg

DRUGS (6)
  1. SEROQUEL XR [Suspect]
     Indication: DEPRESSION
     Route: 048
     Dates: start: 20101101, end: 20101201
  2. XANAX [Suspect]
     Route: 065
  3. LISINOPRIL [Concomitant]
     Indication: HYPERTENSION
     Route: 048
  4. CYMBALTA [Concomitant]
     Indication: DEPRESSION
     Route: 048
  5. OXYCODONE HCL [Concomitant]
     Indication: BACK PAIN
     Route: 048
  6. LEXAPRO [Suspect]
     Route: 065

REACTIONS (2)
  - SUICIDE ATTEMPT [None]
  - FATIGUE [None]
